FAERS Safety Report 6327737-1 (Version None)
Quarter: 2009Q3

REPORT INFORMATION
  Report Type: 
  Country: None (occurrence: None)
  Receive Date: 20090824
  Receipt Date: 20090811
  Transmission Date: 20100115
  Serious: Yes (Death, Hospitalization)
  Sender: FDA-Public Use
  Company Number: 2009AL003263

PATIENT
  Age: 66 Year
  Sex: Female

DRUGS (21)
  1. DIGOXIN [Suspect]
     Dosage: 0.125MG, DAILY, PO
     Route: 048
  2. CALCIUM [Concomitant]
  3. FOSAMAX [Concomitant]
  4. ALBUTEROL [Concomitant]
  5. ASPIRIN [Concomitant]
  6. PRILOSEC [Concomitant]
  7. NITROGLYCERIN [Concomitant]
  8. VYTORIN [Concomitant]
  9. VITAMIN B-12 [Concomitant]
  10. ALDACTONE [Concomitant]
  11. COREG [Concomitant]
  12. MICRO-K [Concomitant]
  13. SYNTHROID [Concomitant]
  14. LASIX [Concomitant]
  15. LIBRAX [Concomitant]
  16. FISH OIL [Concomitant]
  17. METOPROLOL [Concomitant]
  18. SIMVASTATIN [Concomitant]
  19. BUMEX [Concomitant]
  20. FLORINEF [Concomitant]
  21. LOMOTIL [Concomitant]

REACTIONS (24)
  - ANXIETY [None]
  - CHEST PAIN [None]
  - DIZZINESS [None]
  - DYSPNOEA [None]
  - ECONOMIC PROBLEM [None]
  - FALL [None]
  - FAMILY STRESS [None]
  - HYPOTENSION [None]
  - ILL-DEFINED DISORDER [None]
  - INTERMITTENT CLAUDICATION [None]
  - LEFT VENTRICULAR DYSFUNCTION [None]
  - LIMB INJURY [None]
  - LOSS OF CONSCIOUSNESS [None]
  - MULTIPLE INJURIES [None]
  - MUSCULOSKELETAL CHEST PAIN [None]
  - PAIN [None]
  - PAIN IN EXTREMITY [None]
  - PRESYNCOPE [None]
  - SINUSITIS [None]
  - SOCIAL PROBLEM [None]
  - SURGERY [None]
  - SYNCOPE [None]
  - THERAPEUTIC AGENT TOXICITY [None]
  - VERTIGO [None]
